FAERS Safety Report 6328262-4 (Version None)
Quarter: 2009Q3

REPORT INFORMATION
  Report Type: 
  Country: None (occurrence: None)
  Receive Date: 20090825
  Receipt Date: 20090303
  Transmission Date: 20100115
  Serious: No
  Sender: FDA-Public Use
  Company Number: US-ABBOTT-09P-163-0560583-00

PATIENT
  Sex: Female
  Weight: 61.29 kg

DRUGS (2)
  1. SYNTHROID [Suspect]
     Indication: HYPOTHYROIDISM
     Dates: start: 20081001, end: 20090226
  2. SYNTHROID [Suspect]
     Dates: end: 20081001

REACTIONS (4)
  - ABDOMINAL DISTENSION [None]
  - COUGH [None]
  - DRY SKIN [None]
  - WEIGHT INCREASED [None]
